FAERS Safety Report 9968640 (Version 3)
Quarter: 2014Q1

REPORT INFORMATION
  Report Type: Report from Study
  Country: FR (occurrence: FR)
  Receive Date: 20140306
  Receipt Date: 20140310
  Transmission Date: 20141002
  Serious: Yes (Other)
  Sender: FDA-Public Use
  Company Number: FR-ROCHE-1298992

PATIENT
  Age: 38 Year
  Sex: Male
  Weight: 79 kg

DRUGS (9)
  1. TOCILIZUMAB [Suspect]
     Indication: RHEUMATOID ARTHRITIS
     Route: 042
     Dates: start: 20120523
  2. TOCILIZUMAB [Suspect]
     Route: 042
     Dates: start: 20121130
  3. TOCILIZUMAB [Suspect]
     Route: 042
     Dates: start: 20121228
  4. TOCILIZUMAB [Suspect]
     Route: 042
     Dates: start: 20130125
  5. TOCILIZUMAB [Suspect]
     Route: 042
     Dates: start: 20130222
  6. ARAVA [Concomitant]
     Route: 048
  7. CORTANCYL [Concomitant]
     Route: 048
  8. CORTANCYL [Concomitant]
     Route: 048
  9. ATORVASTATIN [Concomitant]
     Route: 048

REACTIONS (1)
  - Hepatocellular injury [Recovered/Resolved]
